FAERS Safety Report 13018062 (Version 1)
Quarter: 2016Q4

REPORT INFORMATION
  Report Type: Spontaneous
  Country: GB (occurrence: GB)
  Receive Date: 20161212
  Receipt Date: 20161212
  Transmission Date: 20170207
  Serious: Yes (Disabling, Other)
  Sender: FDA-Public Use
  Company Number: GB-TEVA-717498ACC

PATIENT
  Age: 56 Year
  Sex: Male
  Weight: 84.8 kg

DRUGS (8)
  1. CO-DYDRAMOL [Concomitant]
     Active Substance: ACETAMINOPHEN\DIHYDROCODEINE
     Dosage: 10/500 MILLIGRAMS
     Dates: start: 20161003
  2. RAMIPRIL. [Concomitant]
     Active Substance: RAMIPRIL
     Dates: start: 20160923, end: 20161116
  3. OMEPRAZOLE. [Concomitant]
     Active Substance: OMEPRAZOLE
     Dates: start: 20161007
  4. METFORMIN [Suspect]
     Active Substance: METFORMIN HYDROCHLORIDE
     Dates: start: 20120101, end: 20160925
  5. NAPROXEN. [Concomitant]
     Active Substance: NAPROXEN
     Dates: start: 20161007
  6. SIMVASTATIN. [Concomitant]
     Active Substance: SIMVASTATIN
     Dates: start: 20160923, end: 20161116
  7. MUPIROCIN. [Concomitant]
     Active Substance: MUPIROCIN
     Route: 045
     Dates: start: 20161026
  8. GLICLAZIDE [Concomitant]
     Active Substance: GLICLAZIDE
     Dates: start: 20160923, end: 20161116

REACTIONS (3)
  - Genital pain [Recovered/Resolved]
  - Bone pain [Recovered/Resolved]
  - Pelvic pain [Recovered/Resolved]

NARRATIVE: CASE EVENT DATE: 20120206
